FAERS Safety Report 9523035 (Version 1)
Quarter: 2013Q3

REPORT INFORMATION
  Report Type: Spontaneous
  Country: US (occurrence: US)
  Receive Date: 20130913
  Receipt Date: 20130913
  Transmission Date: 20140515
  Serious: Yes (Other)
  Sender: FDA-Public Use
  Company Number: US-TEVA-432047USA

PATIENT
  Age: 23 Year
  Sex: Female
  Weight: 61.29 kg

DRUGS (2)
  1. PARAGARD 380A [Suspect]
     Indication: CONTRACEPTION
     Route: 015
     Dates: start: 20130628, end: 20130909
  2. VITREX [Concomitant]
     Indication: ORAL HERPES

REACTIONS (3)
  - Device dislocation [Recovered/Resolved]
  - Muscle spasms [Not Recovered/Not Resolved]
  - Device expulsion [Recovered/Resolved]
